FAERS Safety Report 8330292-8 (Version None)
Quarter: 2012Q2

REPORT INFORMATION
  Report Type: 
  Country: None (occurrence: None)
  Receive Date: 20120430
  Receipt Date: 20120419
  Transmission Date: 20120825
  Serious: Yes (Hospitalization, Other)
  Sender: FDA-Public Use
  Company Number: DSA_56247_2012

PATIENT
  Age: 48 Year
  Sex: Male

DRUGS (2)
  1. DICLOFENAC SODIUM [Suspect]
     Indication: ARTHRALGIA
     Dosage: (DF)
  2. TRIMEBUTINE (TRIMEBUTINE) [Suspect]
     Indication: PRODUCT USED FOR UNKNOWN INDICATION
     Dosage: (DF)

REACTIONS (9)
  - PRURITUS [None]
  - DIARRHOEA [None]
  - SKIN PLAQUE [None]
  - ABDOMINAL TENDERNESS [None]
  - DRUG ERUPTION [None]
  - ERYTHEMA MULTIFORME [None]
  - SKIN LESION [None]
  - GLYCOSYLATED HAEMOGLOBIN INCREASED [None]
  - BLOOD GLUCOSE INCREASED [None]
